FAERS Safety Report 9036786 (Version 1)
Quarter: 2013Q1

REPORT INFORMATION
  Report Type: Spontaneous
  Country: US (occurrence: None)
  Receive Date: 20130118
  Receipt Date: 20130118
  Transmission Date: 20140127
  Serious: Yes (Other)
  Sender: FDA-Public Use
  Company Number: None

PATIENT
  Age: 37 Year
  Sex: Female
  Weight: 78.47 kg

DRUGS (1)
  1. BUPROPION HYDROCHLORIDE XL [Suspect]
     Route: 048
     Dates: start: 201003, end: 201005

REACTIONS (2)
  - Headache [None]
  - Product substitution issue [None]
